FAERS Safety Report 5734608-8 (Version None)
Quarter: 2008Q2

REPORT INFORMATION
  Report Type: 
  Country: None (occurrence: None)
  Receive Date: 20080508
  Receipt Date: 20080508
  Transmission Date: 20081010
  Serious: Yes (Other)
  Sender: FDA-Public Use
  Company Number: None

PATIENT
  Age: 34 Year
  Sex: Female
  Weight: 65.7716 kg

DRUGS (2)
  1. CREST PROHEALTH NIGHT RINSE [Suspect]
     Dosage: 3 TIMES DAILY
  2. PROHEALTH RINSE + TOOTHPASTE [Suspect]

REACTIONS (1)
  - TOOTH DISCOLOURATION [None]
